FAERS Safety Report 14111121 (Version 1)
Quarter: 2017Q4

REPORT INFORMATION
  Report Type: Report from Study
  Country: GB (occurrence: GB)
  Receive Date: 20171020
  Receipt Date: 20171020
  Transmission Date: 20180321
  Serious: Yes (Other)
  Sender: FDA-Public Use
  Company Number: GB-UCBSA-2017041406

PATIENT
  Age: 57 Year
  Sex: Male

DRUGS (2)
  1. ROTIGOTINE [Suspect]
     Active Substance: ROTIGOTINE
     Indication: PARKINSON^S DISEASE
     Dosage: UNK
  2. CARBIDOPA W/LEVODOPA [Concomitant]
     Active Substance: CARBIDOPA\LEVODOPA
     Indication: PRODUCT USED FOR UNKNOWN INDICATION
     Dosage: UNK

REACTIONS (15)
  - Constipation [Unknown]
  - Initial insomnia [Unknown]
  - Memory impairment [Unknown]
  - Choking [Unknown]
  - Dysphagia [Unknown]
  - Micturition urgency [Unknown]
  - Musculoskeletal stiffness [None]
  - Sleep talking [Unknown]
  - Gastrointestinal motility disorder [Unknown]
  - Balance disorder [Unknown]
  - Poor quality sleep [Unknown]
  - Middle insomnia [Unknown]
  - Fall [Unknown]
  - Hyperhidrosis [Unknown]
  - Stress [Unknown]
